FAERS Safety Report 6589111-2 (Version None)
Quarter: 2010Q1

REPORT INFORMATION
  Report Type: 
  Country: None (occurrence: None)
  Receive Date: 20100218
  Receipt Date: 20100216
  Transmission Date: 20100710
  Serious: Yes (Other)
  Sender: FDA-Public Use
  Company Number: JP-ELI_LILLY_AND_COMPANY-JP201001002983

PATIENT
  Sex: Male
  Weight: 61.7 kg

DRUGS (12)
  1. PRASUGREL HYDROCHLORIDE [Suspect]
     Indication: CORONARY ARTERY DISEASE
     Dosage: 20 MG, UNK
     Route: 048
     Dates: start: 20100107, end: 20100107
  2. PRASUGREL HYDROCHLORIDE [Suspect]
     Dosage: 3.75 MG, UNK
     Route: 048
     Dates: start: 20100108, end: 20100108
  3. ASPIRIN [Concomitant]
  4. ADALAT [Concomitant]
     Indication: HYPERTENSION
     Dosage: 40 MG, UNK
  5. NATRIX [Concomitant]
     Indication: HYPERTENSION
     Dosage: 1 MG, UNK
  6. MICARDIS [Concomitant]
     Indication: HYPERTENSION
     Dosage: 40 MG, UNK
  7. SIGMART [Concomitant]
     Indication: ANGINA PECTORIS
     Dosage: 5 MG, UNK
  8. FRANDOL [Concomitant]
     Indication: ANGINA PECTORIS
     Dosage: 40 MG, UNK
  9. ALLOPURINOL [Concomitant]
     Indication: HYPERURICAEMIA
     Dosage: 200 MG, UNK
  10. HARNAL [Concomitant]
     Indication: BENIGN PROSTATIC HYPERPLASIA
     Dosage: 0.2 MG, UNK
     Route: 048
  11. CERNILTON [Concomitant]
     Indication: BENIGN PROSTATIC HYPERPLASIA
     Dosage: 126 MG, UNK
     Route: 048
  12. LAXATIVES [Concomitant]
     Indication: CONSTIPATION
     Dosage: UNK, DAILY (1/D)
     Route: 048

REACTIONS (2)
  - CARDIAC TAMPONADE [None]
  - PERICARDIAL HAEMORRHAGE [None]
